FAERS Safety Report 4320433-1 (Version None)
Quarter: 2004Q1

REPORT INFORMATION
  Report Type: 
  Country: None (occurrence: None)
  Receive Date: 20040319
  Receipt Date: 20040319
  Transmission Date: 20041129
  Serious: Yes (Hospitalization)
  Sender: FDA-Public Use
  Company Number: None

PATIENT
  Age: 65 Year
  Sex: Female
  Weight: 56.6996 kg

DRUGS (6)
  1. BLOOD ROOT SALVE [Suspect]
     Indication: SKIN CANCER
     Dates: start: 20040217, end: 20040304
  2. SYNTHROID [Concomitant]
  3. FOSAMAX [Concomitant]
  4. CLARINEX [Concomitant]
  5. SALSALATE [Concomitant]
  6. VITAMIN SUPPLEMENT [Concomitant]

REACTIONS (4)
  - BREAST NECROSIS [None]
  - BREAST PAIN [None]
  - SEBORRHOEIC KERATOSIS [None]
  - SELF-MEDICATION [None]
